FAERS Safety Report 9436805 (Version 2)
Quarter: 2014Q3

REPORT INFORMATION
  Report Type: Spontaneous
  Country: TR (occurrence: TR)
  Receive Date: 20130802
  Receipt Date: 20140930
  Transmission Date: 20150326
  Serious: Yes (Hospitalization)
  Sender: FDA-Public Use
  Company Number: TR-RANBAXY-2013R1-71808

PATIENT
  Sex: Female
  Weight: .76 kg

DRUGS (1)
  1. HYDROCORTISONE. [Suspect]
     Active Substance: HYDROCORTISONE
     Indication: BRONCHOPULMONARY DYSPLASIA
     Dosage: 1 MG/KG/DAY IN TWO DOSES
     Route: 065

REACTIONS (2)
  - Hypertension [Recovered/Resolved]
  - Cardiac hypertrophy [Recovered/Resolved]
